FAERS Safety Report 8094019-X (Version None)
Quarter: 2012Q1

REPORT INFORMATION
  Report Type: 
  Country: None (occurrence: None)
  Receive Date: 20120131
  Receipt Date: 20120125
  Transmission Date: 20120608
  Serious: Yes (Death, Hospitalization, Disabling, Other)
  Sender: FDA-Public Use
  Company Number: PHEH2007US02905

PATIENT
  Sex: Male

DRUGS (45)
  1. TESTOSTERONE [Concomitant]
  2. COLCHICINE [Concomitant]
  3. ZOSYN [Concomitant]
  4. OMEPRAZOLE [Concomitant]
     Dosage: 20 MG,
  5. ACETAMINOPHEN [Concomitant]
     Dosage: 325 MG,
  6. LASIX [Concomitant]
     Dosage: 40 MG,
  7. NYSTATIN [Concomitant]
  8. MOTRIN [Concomitant]
     Dosage: 400 MG,
  9. ZOMETA [Suspect]
     Dosage: UNK UKN, QMO
     Dates: end: 20041201
  10. FLOMAX [Suspect]
  11. ACYCLOVIR [Concomitant]
     Dosage: 400 MG,
  12. BECLOMETHASONE AQUEOUS [Concomitant]
     Dosage: 5 MG,
  13. VANCOMYCIN [Concomitant]
  14. DEXAMETHASONE [Concomitant]
  15. DITROPAN [Concomitant]
  16. SENOKOT [Concomitant]
  17. PROTONIX [Concomitant]
     Dosage: 40 MG,
  18. ALLOPURINOL [Concomitant]
  19. RANESTOL [Concomitant]
  20. ONDANSETRON HCL [Concomitant]
  21. DILAUDID [Concomitant]
  22. TETRACYCLINE [Concomitant]
  23. FLEXERIL [Concomitant]
     Dosage: 10 MG, UNK
  24. DOXYCYCLINE [Concomitant]
  25. CHEMOTHERAPEUTICS NOS [Concomitant]
     Dates: start: 20031201
  26. OXYCODONE HCL [Concomitant]
     Dosage: 15 MG,
  27. AMBIEN [Concomitant]
  28. MAGIC MOUTHWASH [Concomitant]
  29. ARMODAFINIL [Concomitant]
     Dosage: 100 MG,
  30. UROXATRAL [Concomitant]
     Dosage: 10 MG,
  31. AREDIA [Suspect]
     Dosage: UNK, QW4
  32. VALIUM [Concomitant]
  33. ELAVIL [Concomitant]
  34. ZOLOFT [Concomitant]
  35. MULTI-VITAMINS [Concomitant]
  36. LEVAQUIN [Concomitant]
     Dosage: 750 MG,
     Route: 048
  37. SOLU-MEDROL [Concomitant]
  38. BACLOFEN [Concomitant]
     Dosage: 10 MG,
  39. CLEOCIN HYDROCHLORIDE [Concomitant]
  40. VICODIN [Concomitant]
  41. FAMVIR                                  /UNK/ [Concomitant]
     Dosage: 500 MG,
  42. GABAPENTIN [Concomitant]
  43. SAW PALMETTO [Concomitant]
  44. VITAMIN A [Concomitant]
  45. CHLORHEXIDINE GLUCONATE [Concomitant]

REACTIONS (99)
  - MULTIPLE MYELOMA [None]
  - BENIGN PROSTATIC HYPERPLASIA [None]
  - ASPARTATE AMINOTRANSFERASE INCREASED [None]
  - INTERVERTEBRAL DISC DEGENERATION [None]
  - DIABETES MELLITUS [None]
  - NEUROPATHY PERIPHERAL [None]
  - PARAESTHESIA ORAL [None]
  - MYALGIA [None]
  - HYPERTENSION [None]
  - SCIATICA [None]
  - GASTROINTESTINAL TRACT IRRITATION [None]
  - DIARRHOEA [None]
  - CARPAL TUNNEL SYNDROME [None]
  - ANAEMIA [None]
  - OEDEMA PERIPHERAL [None]
  - PULMONARY EMBOLISM [None]
  - PRODUCTIVE COUGH [None]
  - NAUSEA [None]
  - ORAL CANDIDIASIS [None]
  - HETEROTAXIA [None]
  - ORAL HERPES [None]
  - NERVOUSNESS [None]
  - IMPAIRED HEALING [None]
  - OSTEOPENIA [None]
  - BACK PAIN [None]
  - PROSTATITIS [None]
  - LOWER EXTREMITY MASS [None]
  - PERICARDIAL EFFUSION [None]
  - THROMBOCYTOPENIA [None]
  - LEUKOCYTOSIS [None]
  - RED BLOOD CELL COUNT DECREASED [None]
  - RASH [None]
  - PNEUMONIA [None]
  - MOUTH ULCERATION [None]
  - TOOTH FRACTURE [None]
  - GENERAL PHYSICAL HEALTH DETERIORATION [None]
  - MALIGNANT MELANOMA [None]
  - HYPOKALAEMIA [None]
  - MYELODYSPLASTIC SYNDROME [None]
  - BETA HAEMOLYTIC STREPTOCOCCAL INFECTION [None]
  - OCULAR HYPERAEMIA [None]
  - CONFUSIONAL STATE [None]
  - DYSPHAGIA [None]
  - DIZZINESS [None]
  - SEXUAL DYSFUNCTION [None]
  - GINGIVAL BLEEDING [None]
  - HYPOGONADISM [None]
  - PAIN IN JAW [None]
  - DENTAL CARIES [None]
  - RIB FRACTURE [None]
  - TENDONITIS [None]
  - PAIN IN EXTREMITY [None]
  - ABDOMINAL PAIN [None]
  - AORTIC VALVE SCLEROSIS [None]
  - RENAL ANEURYSM [None]
  - PANCYTOPENIA [None]
  - HYPONATRAEMIA [None]
  - HYPOGAMMAGLOBULINAEMIA [None]
  - PYREXIA [None]
  - ARTHRALGIA [None]
  - FATIGUE [None]
  - HEADACHE [None]
  - BONE LOSS [None]
  - TOOTH INFECTION [None]
  - HAEMATURIA [None]
  - MENIERE'S DISEASE [None]
  - METASTASES TO BONE [None]
  - PHARYNGITIS [None]
  - OROPHARYNGEAL PAIN [None]
  - HERPES ZOSTER [None]
  - SINUS DISORDER [None]
  - PRIMARY SEQUESTRUM [None]
  - BURSITIS [None]
  - ANXIETY [None]
  - HAEMOGLOBIN DECREASED [None]
  - TRANSAMINASES INCREASED [None]
  - DYSPNOEA EXERTIONAL [None]
  - OSTEOMYELITIS [None]
  - TONSILLITIS [None]
  - ROTATOR CUFF SYNDROME [None]
  - SCLERITIS [None]
  - OSTEONECROSIS OF JAW [None]
  - PAIN [None]
  - DECREASED INTEREST [None]
  - ACTINOMYCOSIS [None]
  - PARAPROTEINAEMIA [None]
  - GINGIVAL RECESSION [None]
  - INTERVERTEBRAL DISC DISPLACEMENT [None]
  - HYPOPHOSPHATAEMIA [None]
  - RENAL CYST [None]
  - CERVICAL SPINAL STENOSIS [None]
  - LEFT ATRIAL DILATATION [None]
  - CARDIAC MURMUR [None]
  - INSOMNIA [None]
  - PSORIASIS [None]
  - FACIAL PAIN [None]
  - MUSCULOSKELETAL PAIN [None]
  - NEPHROLITHIASIS [None]
  - DEPRESSION [None]
